FAERS Safety Report 12850483 (Version 2)
Quarter: 2017Q1

REPORT INFORMATION
  Report Type: Spontaneous
  Country: US (occurrence: US)
  Receive Date: 20161014
  Receipt Date: 20170206
  Transmission Date: 20170428
  Serious: Yes (Other)
  Sender: FDA-Public Use
  Company Number: US-BAYER-2016-198342

PATIENT
  Age: 30 Year
  Sex: Female
  Weight: 83.9 kg

DRUGS (2)
  1. MIRENA [Suspect]
     Active Substance: LEVONORGESTREL
     Indication: CONTRACEPTION
     Dosage: 20 MCG/24HR, CONT
     Route: 015
     Dates: end: 20161111
  2. MIRENA [Suspect]
     Active Substance: LEVONORGESTREL
     Indication: CONTRACEPTION
     Dosage: 20 MCG/24HR, CONT
     Route: 015
     Dates: start: 20160930, end: 20160930

REACTIONS (6)
  - Post procedural discomfort [None]
  - Medication error [None]
  - Device difficult to use [None]
  - Complication of device insertion [None]
  - Embedded device [Recovered/Resolved]
  - Inadequate aseptic technique in use of product [None]

NARRATIVE: CASE EVENT DATE: 20160930
